FAERS Safety Report 9424648 (Version 1)
Quarter: 2013Q3

REPORT INFORMATION
  Report Type: Spontaneous
  Country: MO (occurrence: MO)
  Receive Date: 20130729
  Receipt Date: 20130729
  Transmission Date: 20140515
  Serious: Yes (Death)
  Sender: FDA-Public Use
  Company Number: MO-ABBOTT-13P-075-1125049-00

PATIENT
  Sex: 0

DRUGS (1)
  1. ZEMPLAR [Suspect]
     Indication: HYPERPARATHYROIDISM SECONDARY
     Route: 042

REACTIONS (1)
  - Death [Fatal]
